FAERS Safety Report 5581690-7 (Version None)
Quarter: 2008Q1

REPORT INFORMATION
  Report Type: 
  Country: None (occurrence: None)
  Receive Date: 20080104
  Receipt Date: 20071221
  Transmission Date: 20080703
  Serious: Yes (Other)
  Sender: FDA-Public Use
  Company Number: CH-AMGEN-US258156

PATIENT
  Sex: Male

DRUGS (2)
  1. ENBREL [Suspect]
     Indication: DRUG USE FOR UNKNOWN INDICATION
     Dates: end: 20071201
  2. METHOTREXATE [Concomitant]

REACTIONS (1)
  - PULMONARY SARCOIDOSIS [None]
